FAERS Safety Report 14120366 (Version 4)
Quarter: 2022Q3

REPORT INFORMATION
  Report Type: Spontaneous
  Country: US (occurrence: US)
  Receive Date: 20171024
  Receipt Date: 20220901
  Transmission Date: 20221026
  Serious: Yes (Hospitalization)
  Sender: FDA-Public Use
  Company Number: US-PFIZER INC-2017456861

PATIENT
  Age: 80 Year
  Sex: Male

DRUGS (2)
  1. XELJANZ [Suspect]
     Active Substance: TOFACITINIB CITRATE
     Dosage: 5 MG, 1X/DAY
     Route: 048
  2. XELJANZ [Suspect]
     Active Substance: TOFACITINIB CITRATE
     Dosage: 5 MG (EVEY OTHER DAY)

REACTIONS (7)
  - Renal disorder [Unknown]
  - Off label use [Unknown]
  - Intentional dose omission [Unknown]
  - Memory impairment [Unknown]
  - Confusional state [Unknown]
  - Pain [Unknown]
  - Musculoskeletal stiffness [Unknown]
